FAERS Safety Report 7935812-0 (Version None)
Quarter: 2011Q4

REPORT INFORMATION
  Report Type: 
  Country: None (occurrence: None)
  Receive Date: 20111123
  Receipt Date: 20111115
  Transmission Date: 20120403
  Serious: Yes (Other)
  Sender: FDA-Public Use
  Company Number: US-JNJFOC-20111106442

PATIENT
  Sex: Male
  Weight: 88.45 kg

DRUGS (1)
  1. CONCERTA [Suspect]
     Indication: ATTENTION DEFICIT/HYPERACTIVITY DISORDER
     Route: 048
     Dates: start: 20060101

REACTIONS (3)
  - DRUG ADMINISTRATION ERROR [None]
  - ATRIAL FIBRILLATION [None]
  - WRONG TECHNIQUE IN DRUG USAGE PROCESS [None]
